FAERS Safety Report 8797417 (Version 1)
Quarter: 2012Q4

REPORT INFORMATION
  Report Type: 
  Country: US (occurrence: US)
  Receive Date: 20120920
  Receipt Date: 20120920
  Transmission Date: 20130627
  Serious: No
  Sender: FDA-Public Use
  Company Number: US-009507513-1209USA004872

PATIENT
  Age: 67 Year
  Sex: Female

DRUGS (8)
  1. MIRALAX [Suspect]
     Indication: PRODUCT USED FOR UNKNOWN INDICATION
     Dosage: 17 g, Unknown
     Route: 048
     Dates: start: 201209, end: 20120908
  2. MIRALAX [Suspect]
     Indication: MEDICAL OBSERVATION
  3. AMITIZA [Suspect]
     Indication: CONSTIPATION
     Dosage: 8 Microgram, Unknown
     Route: 048
     Dates: start: 201208
  4. AMITIZA [Suspect]
     Indication: MEDICAL OBSERVATION
  5. SERTRALINE HYDROCHLORIDE [Concomitant]
     Indication: PRODUCT USED FOR UNKNOWN INDICATION
     Dosage: UNK, Unknown
  6. INSULIN [Concomitant]
     Indication: PRODUCT USED FOR UNKNOWN INDICATION
     Dosage: UNK, Unknown
  7. PANTOPRAZOLE [Concomitant]
     Indication: PRODUCT USED FOR UNKNOWN INDICATION
     Dosage: UNK, Unknown
  8. LISINOPRIL [Concomitant]
     Indication: PRODUCT USED FOR UNKNOWN INDICATION
     Dosage: UNK, Unknown

REACTIONS (2)
  - Diarrhoea [Not Recovered/Not Resolved]
  - Rectal tenesmus [Not Recovered/Not Resolved]
